FAERS Safety Report 18178392 (Version 3)
Quarter: 2023Q2

REPORT INFORMATION
  Report Type: Spontaneous
  Country: CA (occurrence: CA)
  Receive Date: 20200821
  Receipt Date: 20230626
  Transmission Date: 20230721
  Serious: Yes (Life-Threatening, Hospitalization, Other)
  Sender: FDA-Public Use
  Company Number: CA-TEVA-2020-CA-1815663

PATIENT
  Age: 6 Year
  Sex: Male
  Weight: 20 kg

DRUGS (15)
  1. VINCRISTINE SULFATE [Suspect]
     Active Substance: VINCRISTINE SULFATE
     Indication: Product used for unknown indication
     Route: 065
  2. CISPLATIN [Suspect]
     Active Substance: CISPLATIN
     Indication: Chemotherapy
     Route: 042
  3. CISPLATIN [Suspect]
     Active Substance: CISPLATIN
     Indication: Product used for unknown indication
     Dosage: FREQUENCY TIME : ONCE
     Route: 042
  4. CISPLATIN [Suspect]
     Active Substance: CISPLATIN
     Indication: Medulloblastoma
     Route: 058
  5. CYCLOPHOSPHAMIDE [Suspect]
     Active Substance: CYCLOPHOSPHAMIDE
     Indication: Product used for unknown indication
     Route: 065
  6. CYCLOPHOSPHAMIDE [Suspect]
     Active Substance: CYCLOPHOSPHAMIDE
     Indication: Medulloblastoma
     Dosage: 800 MILLIGRAM DAILY;
     Route: 042
  7. CYCLOPHOSPHAMIDE [Suspect]
     Active Substance: CYCLOPHOSPHAMIDE
     Route: 058
  8. DOXORUBICIN HYDROCHLORIDE [Suspect]
     Active Substance: DOXORUBICIN HYDROCHLORIDE
     Indication: Product used for unknown indication
     Route: 065
  9. ETOPOSIDE [Suspect]
     Active Substance: ETOPOSIDE
     Indication: Product used for unknown indication
     Route: 065
  10. DIMENHYDRINATE [Concomitant]
     Active Substance: DIMENHYDRINATE
     Indication: Product used for unknown indication
  11. EMEND [Concomitant]
     Active Substance: APREPITANT
     Indication: Product used for unknown indication
  12. OMEPRAZOLE [Concomitant]
     Active Substance: OMEPRAZOLE
     Indication: Product used for unknown indication
  13. ONDANSETRON [Concomitant]
     Active Substance: ONDANSETRON
     Indication: Product used for unknown indication
  14. VINCRISTINE SULFATE [Concomitant]
     Active Substance: VINCRISTINE SULFATE
     Indication: Product used for unknown indication
  15. [SEPTRA] [Concomitant]
     Indication: Product used for unknown indication

REACTIONS (3)
  - Febrile neutropenia [Unknown]
  - Abdominal infection [Unknown]
  - SARS-CoV-2 test negative [Recovering/Resolving]
